FAERS Safety Report 18343660 (Version 1)
Quarter: 2020Q4

REPORT INFORMATION
  Report Type: Spontaneous
  Country: US (occurrence: US)
  Receive Date: 20201005
  Receipt Date: 20201005
  Transmission Date: 20210113
  Serious: No
  Sender: FDA-Public Use
  Company Number: US-MYLANLABS-2020M1082833

PATIENT
  Age: 64 Year
  Sex: Female
  Weight: 77 kg

DRUGS (1)
  1. ESTRADIOL VAGINAL CREAM USP [Suspect]
     Active Substance: ESTRADIOL
     Indication: HORMONE REPLACEMENT THERAPY
     Dosage: 0.5 GRAM, Q2W
     Route: 067
     Dates: start: 20200920

REACTIONS (4)
  - Vulvovaginal pain [Not Recovered/Not Resolved]
  - Incorrect dose administered [Recovering/Resolving]
  - Feeling abnormal [Recovering/Resolving]
  - Drug hypersensitivity [Not Recovered/Not Resolved]

NARRATIVE: CASE EVENT DATE: 20200925
